FAERS Safety Report 24172301 (Version 1)
Quarter: 2024Q3

REPORT INFORMATION
  Report Type: Spontaneous
  Country: CH (occurrence: CH)
  Receive Date: 20240805
  Receipt Date: 20240805
  Transmission Date: 20241016
  Serious: Yes (Other)
  Sender: CHEPLAPHARM
  Company Number: None

PATIENT
  Age: 64 Year
  Sex: Female

DRUGS (3)
  1. CAPECITABINE [Suspect]
     Active Substance: CAPECITABINE
     Dosage: ADJUVANT CHEMOTHERAPY
     Dates: start: 202205, end: 202211
  2. Sitagliptin metformin krka [Concomitant]
     Dosage: 1-0-0 CPR PER OS
  3. CREON [Concomitant]
     Active Substance: PANCRELIPASE AMYLASE\PANCRELIPASE LIPASE\PANCRELIPASE PROTEASE
     Dosage: 25000 CAPS, 2-2-0 CAPS PER OS

REACTIONS (4)
  - Systemic lupus erythematosus [Not Recovered/Not Resolved]
  - Thrombocytopenia [Unknown]
  - Leukopenia [Unknown]
  - Lymphopenia [Unknown]

NARRATIVE: CASE EVENT DATE: 20221101
